FAERS Safety Report 8926163 (Version 1)
Quarter: 2012Q4

REPORT INFORMATION
  Report Type: 
  Country: CN (occurrence: CN)
  Receive Date: 20121127
  Receipt Date: 20121127
  Transmission Date: 20130627
  Serious: Yes (Hospitalization)
  Sender: FDA-Public Use
  Company Number: CN-009507513-1211CHN010013

PATIENT
  Sex: Male
  Weight: 63 kg

DRUGS (3)
  1. CLARITYNE [Suspect]
     Indication: URTICARIA CHRONIC
     Dosage: UNK
     Route: 048
     Dates: start: 20090514, end: 20090730
  2. ZYRTEC [Concomitant]
     Indication: URTICARIA CHRONIC
     Dosage: UNK
     Route: 048
     Dates: start: 20090514
  3. MIZOLASTINE [Concomitant]
     Indication: URTICARIA CHRONIC
     Dosage: UNK
     Route: 048
     Dates: start: 20090514

REACTIONS (1)
  - Liver function test abnormal [Unknown]
